FAERS Safety Report 17918902 (Version 3)
Quarter: 2020Q3

REPORT INFORMATION
  Report Type: Spontaneous
  Country: US (occurrence: US)
  Receive Date: 20200619
  Receipt Date: 20200917
  Transmission Date: 20201103
  Serious: Yes (Other)
  Sender: FDA-Public Use
  Company Number: US-PFIZER INC-2020236655

PATIENT
  Age: 77 Year
  Sex: Male

DRUGS (2)
  1. XELJANZ [Suspect]
     Active Substance: TOFACITINIB CITRATE
     Indication: RHEUMATOID ARTHRITIS
     Dosage: 5 MG, 2X/DAY
     Route: 048
     Dates: start: 201910
  2. TYLENOL WITH CODEINE [Concomitant]
     Active Substance: ACETAMINOPHEN\CODEINE PHOSPHATE
     Dosage: UNK, 1X/DAY [ EVERY MORNING]

REACTIONS (5)
  - Condition aggravated [Unknown]
  - Gait disturbance [Unknown]
  - Nasopharyngitis [Unknown]
  - Deep vein thrombosis [Unknown]
  - Depressed mood [Unknown]
